FAERS Safety Report 21470716 (Version 2)
Quarter: 2022Q4

REPORT INFORMATION
  Report Type: Spontaneous
  Country: US (occurrence: US)
  Receive Date: 20221018
  Receipt Date: 20221027
  Transmission Date: 20230113
  Serious: No
  Sender: FDA-Public Use
  Company Number: US-UNITED THERAPEUTICS-UNT-2022-024288

PATIENT
  Sex: Female

DRUGS (3)
  1. REMODULIN [Suspect]
     Active Substance: TREPROSTINIL
     Indication: Pulmonary arterial hypertension
     Dosage: UNK, CONTINUING
     Route: 058
     Dates: start: 20220920
  2. REMODULIN [Suspect]
     Active Substance: TREPROSTINIL
     Dosage: 0.0155 ?G/KG (AT PUMP RATE OF 0.034 ML/HR), CONTINUING
     Route: 058
     Dates: start: 2022
  3. TREPROSTINIL [Suspect]
     Active Substance: TREPROSTINIL
     Indication: Pulmonary arterial hypertension
     Dosage: UNK, CONTINUING
     Route: 058
     Dates: end: 20220920

REACTIONS (5)
  - Pain [Unknown]
  - Neuralgia [Not Recovered/Not Resolved]
  - Pain in extremity [Unknown]
  - Product dispensing error [Unknown]
  - Product administration error [Unknown]

NARRATIVE: CASE EVENT DATE: 20220101
